FAERS Safety Report 8733113 (Version 1)
Quarter: 2012Q4

REPORT INFORMATION
  Report Type: 
  Country: IE (occurrence: IE)
  Receive Date: 20120904
  Receipt Date: 20120904
  Transmission Date: 20130627
  Serious: Yes (Hospitalization)
  Sender: FDA-Public Use
  Company Number: IE-BAXTER-2012BAX014167

PATIENT
  Age: 39 Year
  Sex: Male

DRUGS (8)
  1. SODIUM CHLORIDE INTRAVENOUS INFUSION BP 0.9%W/V [Suspect]
     Indication: DRUG USE FOR UNKNOWN INDICATION
     Dates: end: 20120802
  2. VANCOMYCIN [Suspect]
     Indication: INFECTION
     Route: 042
     Dates: end: 20120802
  3. WATER FOR INJECTION [Suspect]
     Indication: DRUG USE FOR UNKNOWN INDICATION
  4. CELEBREX [Concomitant]
     Indication: PAIN
     Route: 048
  5. LYRICA [Concomitant]
     Indication: NERVE PAIN
     Route: 048
  6. OXYCONTIN [Concomitant]
     Indication: PAIN
     Route: 048
     Dates: start: 20120710
  7. OXYNORM [Concomitant]
     Indication: PAIN
     Route: 048
     Dates: start: 20120710
  8. METRONIDAZOLE [Concomitant]
     Indication: INFECTION
     Route: 048
     Dates: start: 20120710

REACTIONS (5)
  - Malaise [Not Recovered/Not Resolved]
  - Pyrexia [Not Recovered/Not Resolved]
  - Rash [Not Recovered/Not Resolved]
  - Rash generalised [None]
  - Liver function test abnormal [None]
